FAERS Safety Report 4835866-4 (Version None)
Quarter: 2005Q4

REPORT INFORMATION
  Report Type: 
  Country: None (occurrence: None)
  Receive Date: 20051118
  Receipt Date: 20051114
  Transmission Date: 20060501
  Serious: Yes (Life-Threatening, Hospitalization)
  Sender: FDA-Public Use
  Company Number: 05FRA0227

PATIENT
  Age: 55 Year
  Sex: Male

DRUGS (2)
  1. AGGRASTAT [Suspect]
     Indication: ACUTE CORONARY SYNDROME
     Dosage: 0.4 MCG/KG/MIN BOLUS FOLLOWED BY 0.1 MCG/KG/MIN INFUSION
     Dates: start: 20050915, end: 20050915
  2. AGGRASTAT [Suspect]
     Indication: ACUTE CORONARY SYNDROME
     Dosage: 0.1 MCG/KG/MIN INFUSION
     Dates: start: 20050915, end: 20050916

REACTIONS (2)
  - CEREBRAL HAEMORRHAGE [None]
  - DEPRESSED LEVEL OF CONSCIOUSNESS [None]
